FAERS Safety Report 18527604 (Version 4)
Quarter: 2021Q1

REPORT INFORMATION
  Report Type: Spontaneous
  Country: US (occurrence: US)
  Receive Date: 20201120
  Receipt Date: 20210114
  Transmission Date: 20210419
  Serious: No
  Sender: FDA-Public Use
  Company Number: US-GLAXOSMITHKLINE-US2020AMR225404

PATIENT
  Sex: Female

DRUGS (3)
  1. MELATONIN [Suspect]
     Active Substance: MELATONIN
     Indication: INSOMNIA
     Dosage: UNK
     Route: 065
  2. ZEJULA [Suspect]
     Active Substance: NIRAPARIB
     Dosage: 200 MG, QD
     Route: 048
  3. ZEJULA [Suspect]
     Active Substance: NIRAPARIB
     Indication: OVARIAN CANCER
     Dosage: 200 MG, QD
     Route: 048
     Dates: start: 20201029

REACTIONS (15)
  - Blood pressure abnormal [Unknown]
  - Anxiety [Recovering/Resolving]
  - Chest discomfort [Recovering/Resolving]
  - Nausea [Unknown]
  - Fatigue [Not Recovered/Not Resolved]
  - Insomnia [Recovering/Resolving]
  - Taste disorder [Unknown]
  - Dizziness [Unknown]
  - Blood creatinine decreased [Unknown]
  - Muscular weakness [Unknown]
  - Cough [Unknown]
  - Headache [Unknown]
  - Carbohydrate antigen 125 increased [Not Recovered/Not Resolved]
  - Dry mouth [Unknown]
  - Nasopharyngitis [Unknown]
